FAERS Safety Report 15576852 (Version 8)
Quarter: 2025Q2

REPORT INFORMATION
  Report Type: Report from Study
  Country: US (occurrence: US)
  Receive Date: 20181101
  Receipt Date: 20250530
  Transmission Date: 20250716
  Serious: Yes (Hospitalization)
  Sender: TAKEDA
  Company Number: US-MIC-A0P0A00000O61LMEAZ

PATIENT
  Age: 54 Year
  Sex: Female

DRUGS (11)
  1. HUMAN C1-ESTERASE INHIBITOR [Suspect]
     Active Substance: HUMAN C1-ESTERASE INHIBITOR
     Indication: Immune system disorder
  2. HUMAN C1-ESTERASE INHIBITOR [Suspect]
     Active Substance: HUMAN C1-ESTERASE INHIBITOR
     Indication: Hereditary angioedema
  3. HUMAN C1-ESTERASE INHIBITOR [Suspect]
     Active Substance: HUMAN C1-ESTERASE INHIBITOR
  4. KALBITOR [Suspect]
     Active Substance: ECALLANTIDE
     Indication: Hereditary angioedema
  5. KALBITOR [Suspect]
     Active Substance: ECALLANTIDE
  6. KALBITOR [Suspect]
     Active Substance: ECALLANTIDE
     Dosage: UNK UNK, 1/WEEK
     Dates: start: 201805
  7. KALBITOR [Suspect]
     Active Substance: ECALLANTIDE
  8. KALBITOR [Suspect]
     Active Substance: ECALLANTIDE
  9. KALBITOR [Suspect]
     Active Substance: ECALLANTIDE
  10. TAKHZYRO [Suspect]
     Active Substance: LANADELUMAB-FLYO
     Indication: Hereditary angioedema
     Dosage: 300 MILLIGRAM, Q2WEEKS
     Dates: start: 20181106
  11. TAKHZYRO [Suspect]
     Active Substance: LANADELUMAB-FLYO
     Dosage: UNK, Q2WEEKS

REACTIONS (6)
  - Cardiac disorder [Not Recovered/Not Resolved]
  - Fall [Recovered/Resolved]
  - Device related infection [Recovered/Resolved]
  - Pain [Recovered/Resolved]
  - Hereditary angioedema [Not Recovered/Not Resolved]
  - Product dose omission issue [Not Recovered/Not Resolved]

NARRATIVE: CASE EVENT DATE: 20180809
